FAERS Safety Report 6747619-0 (Version None)
Quarter: 2010Q2

REPORT INFORMATION
  Report Type: 
  Country: None (occurrence: None)
  Receive Date: 20100528
  Receipt Date: 20100517
  Transmission Date: 20101027
  Serious: Yes (Other)
  Sender: FDA-Public Use
  Company Number: PHHY2009FR19652

PATIENT
  Sex: Female

DRUGS (6)
  1. ACLASTA [Suspect]
     Indication: OSTEITIS DEFORMANS
     Dosage: 5 MG, UNK
     Route: 042
     Dates: start: 20071115
  2. ACUPAN [Concomitant]
     Indication: OSTEITIS DEFORMANS
     Dosage: UNK
     Dates: start: 20070901
  3. TRAMADOL [Concomitant]
     Indication: OSTEITIS DEFORMANS
     Dosage: UNK
     Dates: start: 20070901
  4. MONOALGIC [Concomitant]
     Indication: OSTEITIS DEFORMANS
     Dosage: 2 DF DAILY
     Dates: start: 20070901
  5. BI-PROFENID [Concomitant]
  6. ZONALGIC [Concomitant]
     Dosage: UNK
     Dates: start: 20070901

REACTIONS (21)
  - ARTHRALGIA [None]
  - BONE ABSCESS [None]
  - DENTAL CARIES [None]
  - DENTAL NECROSIS [None]
  - DENTAL PROSTHESIS PLACEMENT [None]
  - DRUG INEFFECTIVE [None]
  - ENDODONTIC PROCEDURE [None]
  - GENERAL PHYSICAL CONDITION ABNORMAL [None]
  - GINGIVAL DISORDER [None]
  - JAW DISORDER [None]
  - LOOSE TOOTH [None]
  - MONOPLEGIA [None]
  - PAIN [None]
  - PELVIC PAIN [None]
  - PERIODONTITIS [None]
  - PERIPHERAL NERVE LESION [None]
  - POOR PERSONAL HYGIENE [None]
  - SALIVA ALTERED [None]
  - TOOTH EXTRACTION [None]
  - TOOTH LOSS [None]
  - VITAMIN D DEFICIENCY [None]
